FAERS Safety Report 9767646 (Version 6)
Quarter: 2014Q2

REPORT INFORMATION
  Report Type: Spontaneous
  Country: US (occurrence: None)
  Receive Date: 20131213
  Receipt Date: 20140611
  Transmission Date: 20141212
  Serious: Yes (Hospitalization, Other)
  Sender: FDA-Public Use
  Company Number: 2013-US-002978

PATIENT
  Age: 71 Year
  Sex: Female

DRUGS (1)
  1. XYREM [Suspect]
     Indication: NARCOLEPSY
     Dosage: DOSE ADJUSTMENTS
     Route: 048
     Dates: start: 200712

REACTIONS (14)
  - Mitral valve repair [None]
  - Anaemia [None]
  - Weight decreased [None]
  - Gait disturbance [None]
  - Balance disorder [None]
  - Fall [None]
  - Nausea [None]
  - Confusional state [None]
  - Gait disturbance [None]
  - Aggression [None]
  - Medical induction of coma [None]
  - Coma [None]
  - Vertigo [None]
  - Dizziness [None]
